FAERS Safety Report 18419615 (Version 1)
Quarter: 2020Q4

REPORT INFORMATION
  Report Type: Report from Study
  Country: DZ (occurrence: DZ)
  Receive Date: 20201023
  Receipt Date: 20201023
  Transmission Date: 20210114
  Serious: Yes (Death, Hospitalization, Other)
  Sender: FDA-Public Use
  Company Number: DZ-SUN PHARMACEUTICAL INDUSTRIES LTD-2020RR-265141

PATIENT
  Age: 26 Year
  Sex: Male

DRUGS (2)
  1. PARACETAMOL [Suspect]
     Active Substance: ACETAMINOPHEN
     Indication: PRODUCT USED FOR UNKNOWN INDICATION
     Dosage: UNK
     Route: 065
  2. PARACETAMOL [Suspect]
     Active Substance: ACETAMINOPHEN
     Dosage: UNK

REACTIONS (7)
  - Epistaxis [Unknown]
  - Coma [Unknown]
  - Pyrexia [Unknown]
  - Oedema [Unknown]
  - Respiratory arrest [Unknown]
  - Hepatic encephalopathy [Unknown]
  - Toxicity to various agents [Fatal]
